FAERS Safety Report 21837479 (Version 2)
Quarter: 2023Q1

REPORT INFORMATION
  Report Type: Spontaneous
  Country: US (occurrence: US)
  Receive Date: 20230109
  Receipt Date: 20230131
  Transmission Date: 20230418
  Serious: No
  Sender: FDA-Public Use
  Company Number: US-PFIZER INC-202300004922

PATIENT
  Age: 61 Year
  Sex: Female
  Weight: 90.72 kg

DRUGS (2)
  1. PAXLOVID [Suspect]
     Active Substance: NIRMATRELVIR\RITONAVIR
     Indication: COVID-19 treatment
     Dosage: [PF-07321332 300 MG]/[RITONAVIR 100 MG]; 1X/DAY
     Route: 048
     Dates: start: 20230102, end: 20230102
  2. PAXLOVID [Suspect]
     Active Substance: NIRMATRELVIR\RITONAVIR
     Dosage: 3 PILLS IN THE MORNING, 2 PILLS AT NIGHT
     Route: 048
     Dates: start: 20230103, end: 20230103

REACTIONS (9)
  - Therapeutic product effect incomplete [Unknown]
  - Intentional product misuse [Unknown]
  - Incorrect dose administered [Unknown]
  - Abdominal discomfort [Unknown]
  - Diarrhoea [Unknown]
  - Illness [Unknown]
  - Product use complaint [Unknown]
  - Product size issue [Unknown]
  - Retching [Unknown]

NARRATIVE: CASE EVENT DATE: 20230101
